FAERS Safety Report 12272250 (Version 2)
Quarter: 2016Q2

REPORT INFORMATION
  Report Type: Spontaneous
  Country: BR (occurrence: BR)
  Receive Date: 20160415
  Receipt Date: 20160426
  Transmission Date: 20160815
  Serious: Yes (Hospitalization, Other)
  Sender: FDA-Public Use
  Company Number: BR-ASTRAZENECA-2016SE37905

PATIENT
  Age: 56 Year
  Sex: Male
  Weight: 66 kg

DRUGS (8)
  1. SIMVASTATIN. [Concomitant]
     Active Substance: SIMVASTATIN
     Indication: STENT PLACEMENT
     Route: 048
     Dates: start: 201603
  2. SELOZOK [Suspect]
     Active Substance: METOPROLOL SUCCINATE
     Indication: BLOOD PRESSURE INADEQUATELY CONTROLLED
     Route: 048
     Dates: end: 201603
  3. SELOZOK [Suspect]
     Active Substance: METOPROLOL SUCCINATE
     Indication: ARRHYTHMIA
     Route: 048
     Dates: start: 2013, end: 2014
  4. SELOZOK [Suspect]
     Active Substance: METOPROLOL SUCCINATE
     Indication: BLOOD PRESSURE INADEQUATELY CONTROLLED
     Route: 048
     Dates: start: 2013, end: 2014
  5. SELOZOK [Suspect]
     Active Substance: METOPROLOL SUCCINATE
     Indication: ARRHYTHMIA
     Route: 048
     Dates: end: 201603
  6. SUSTRATE [Concomitant]
     Active Substance: PROPATYL NITRATE
     Indication: STENT PLACEMENT
     Dosage: EVERY MORNING
     Route: 048
     Dates: start: 201603
  7. ASA [Concomitant]
     Active Substance: ASPIRIN
     Indication: STENT PLACEMENT
     Route: 048
     Dates: start: 201603
  8. METOPROLOL TARTRATE. [Suspect]
     Active Substance: METOPROLOL TARTRATE
     Dosage: TWO TIMES A DAY
     Route: 048
     Dates: start: 201603

REACTIONS (7)
  - High density lipoprotein decreased [Not Recovered/Not Resolved]
  - Carotid artery disease [Not Recovered/Not Resolved]
  - Infarction [Recovered/Resolved]
  - Weight decreased [Not Recovered/Not Resolved]
  - Off label use [Recovered/Resolved]
  - Drug prescribing error [Not Recovered/Not Resolved]
  - Blood pressure decreased [Recovered/Resolved]

NARRATIVE: CASE EVENT DATE: 2013
